FAERS Safety Report 7814219-0 (Version None)
Quarter: 2011Q4

REPORT INFORMATION
  Report Type: 
  Country: None (occurrence: None)
  Receive Date: 20111014
  Receipt Date: 20111013
  Transmission Date: 20120403
  Serious: Yes (Death)
  Sender: FDA-Public Use
  Company Number: SE-BRISTOL-MYERS SQUIBB COMPANY-16113540

PATIENT
  Age: 62 Year
  Sex: Male

DRUGS (5)
  1. IPILIMUMAB [Suspect]
     Indication: MALIGNANT MELANOMA
     Dosage: CENTRAL VENOUS CATHETER
     Dates: start: 20110908
  2. BETAPRED [Concomitant]
     Indication: MONOPARESIS
     Dosage: 1DF:16+16 TAB
  3. FRAGMIN [Concomitant]
     Dosage: 1DF:1500 UNITS
  4. MORPHINE SULFATE [Concomitant]
  5. OMEPRAZOLE [Concomitant]

REACTIONS (1)
  - NEOPLASM MALIGNANT [None]
